FAERS Safety Report 21009335 (Version 18)
Quarter: 2023Q1

REPORT INFORMATION
  Report Type: Report from Study
  Country: US (occurrence: None)
  Receive Date: 20220627
  Receipt Date: 20230308
  Transmission Date: 20230417
  Serious: Yes (Other)
  Sender: FDA-Public Use
  Company Number: US-ROCHE-3121390

PATIENT
  Age: 62 Year
  Sex: Male
  Weight: 100 kg

DRUGS (24)
  1. RANIBIZUMAB [Suspect]
     Active Substance: RANIBIZUMAB
     Indication: Diabetic retinal oedema
     Dosage: DOSE OF STUDY DRUG FIRST ADMINISTERED 10 MG/ML DOSE LAST STUDY DRUG ADMIN PRIOR AE 100 MG/ML?DOSE LA
     Route: 050
     Dates: start: 20210322
  2. RANIBIZUMAB [Suspect]
     Active Substance: RANIBIZUMAB
  3. RANIBIZUMAB [Suspect]
     Active Substance: RANIBIZUMAB
  4. RANIBIZUMAB [Suspect]
     Active Substance: RANIBIZUMAB
  5. RANIBIZUMAB [Suspect]
     Active Substance: RANIBIZUMAB
  6. RANIBIZUMAB [Concomitant]
     Active Substance: RANIBIZUMAB
     Dosage: DOSE OF STUDY DRUG FIRST ADMINISTERED 6 MG/ML?START DATE OF MOST RECENT DOSE OF STUDY DRUG PRIOR TO
     Route: 050
     Dates: start: 20210510
  7. METOPROLOL TARTRATE [Concomitant]
     Active Substance: METOPROLOL TARTRATE
     Indication: Hypertension
     Dates: start: 1994
  8. LISINOPRIL [Concomitant]
     Active Substance: LISINOPRIL
     Indication: Hypertension
     Dates: start: 1994
  9. AMLODIPINE [Concomitant]
     Active Substance: AMLODIPINE BESYLATE
     Indication: Hypertension
     Dates: start: 1994
  10. LANTUS SOLOSTAR [Concomitant]
     Active Substance: INSULIN GLARGINE
     Indication: Type 2 diabetes mellitus
     Dosage: 100 U
     Dates: start: 2018
  11. EZETIMIBE [Concomitant]
     Active Substance: EZETIMIBE
     Indication: Hyperlipidaemia
     Dates: start: 2015
  12. ACETAMINOPHEN [Concomitant]
     Active Substance: ACETAMINOPHEN
     Indication: Arthralgia
  13. ATORVASTATIN [Concomitant]
     Active Substance: ATORVASTATIN
     Indication: Hyperlipidaemia
     Dates: start: 2015
  14. PAXIL CR [Concomitant]
     Active Substance: PAROXETINE HYDROCHLORIDE
     Indication: Anxiety
  15. CLOBETASOL [Concomitant]
     Active Substance: CLOBETASOL
     Indication: Rash
  16. GATIFLOXACIN [Concomitant]
     Active Substance: GATIFLOXACIN
     Route: 047
     Dates: start: 20210322
  17. MOXIFLOXACIN [Concomitant]
     Active Substance: MOXIFLOXACIN
     Dates: start: 20220613, end: 20220621
  18. TROPICAMIDE [Concomitant]
     Active Substance: TROPICAMIDE
     Dates: start: 20220614, end: 20220627
  19. PREDNISOLONE ACETATE [Concomitant]
     Active Substance: PREDNISOLONE ACETATE
     Dates: start: 20220614, end: 20220808
  20. COSOPT [Concomitant]
     Active Substance: DORZOLAMIDE HYDROCHLORIDE\TIMOLOL MALEATE
     Indication: Intraocular pressure increased
     Route: 047
     Dates: start: 20220624, end: 20220711
  21. TROPICAMIDE [Concomitant]
     Active Substance: TROPICAMIDE
     Dates: start: 20220614, end: 20220627
  22. EXTRA STRENGTH TYLENOL PM [Concomitant]
     Active Substance: ACETAMINOPHEN\DIPHENHYDRAMINE HYDROCHLORIDE
     Dates: start: 20220614, end: 20220718
  23. ASPIRIN [Concomitant]
     Active Substance: ASPIRIN
     Dates: start: 201506, end: 20220607
  24. ASPIRIN [Concomitant]
     Active Substance: ASPIRIN
     Dates: start: 20220801

REACTIONS (2)
  - Vitreous haemorrhage [Recovered/Resolved]
  - Hyphaema [Recovered/Resolved]

NARRATIVE: CASE EVENT DATE: 20220615
